FAERS Safety Report 4833165-8 (Version None)
Quarter: 2005Q4

REPORT INFORMATION
  Report Type: 
  Country: None (occurrence: None)
  Receive Date: 20051117
  Receipt Date: 20051108
  Transmission Date: 20060501
  Serious: Yes (Death, Other)
  Sender: FDA-Public Use
  Company Number: 2005090304

PATIENT
  Age: 44 Year
  Sex: Female
  Weight: 61.2356 kg

DRUGS (5)
  1. FELDENE [Suspect]
     Indication: ARTHRITIS
     Dosage: 10 OR 20 MG
     Dates: start: 20050422, end: 20050613
  2. CELEBREX [Suspect]
     Indication: ARTHRITIS
     Dosage: 400 MG (200 MG, 2 IN 1 D),
     Dates: start: 20050101
  3. EFFEXOR [Concomitant]
  4. TRAZODONE HCL [Concomitant]
  5. PREMARIN [Concomitant]

REACTIONS (8)
  - COMPLETED SUICIDE [None]
  - DRUG INEFFECTIVE [None]
  - HEADACHE [None]
  - INTERVERTEBRAL DISC DEGENERATION [None]
  - OVERDOSE [None]
  - PAIN IN EXTREMITY [None]
  - POOR PERIPHERAL CIRCULATION [None]
  - SHOULDER PAIN [None]
